FAERS Safety Report 8546662-9 (Version None)
Quarter: 2012Q3

REPORT INFORMATION
  Report Type: 
  Country: None (occurrence: None)
  Receive Date: 20120727
  Receipt Date: 20120305
  Transmission Date: 20120928
  Serious: No
  Sender: FDA-Public Use
  Company Number: US-ASTRAZENECA-2012SE05001

PATIENT
  Age: 65 Year
  Sex: Female
  Weight: 83.9 kg

DRUGS (6)
  1. LAMICTAL [Concomitant]
  2. GLUCOPHAGE [Concomitant]
  3. PROZAC [Concomitant]
  4. TOPROL-XL [Suspect]
     Route: 048
  5. SEROQUEL XR [Suspect]
     Route: 048
  6. AMARYL [Concomitant]

REACTIONS (7)
  - DEPRESSED MOOD [None]
  - FEELING ABNORMAL [None]
  - OFF LABEL USE [None]
  - INSOMNIA [None]
  - ANXIETY [None]
  - DRUG DOSE OMISSION [None]
  - SOMNOLENCE [None]
